FAERS Safety Report 20775723 (Version 1)
Quarter: 2022Q2

REPORT INFORMATION
  Report Type: Spontaneous
  Country: US (occurrence: US)
  Receive Date: 20220502
  Receipt Date: 20220502
  Transmission Date: 20220720
  Serious: Yes (Hospitalization)
  Sender: FDA-Public Use
  Company Number: US-JUBILANT CADISTA PHARMACEUTICALS-2022JUB00116

PATIENT
  Age: 77 Year
  Sex: Female

DRUGS (27)
  1. TERAZOSIN [Suspect]
     Active Substance: TERAZOSIN HYDROCHLORIDE
     Dosage: UNK UNK, ONCE
     Dates: start: 20220221
  2. TREPROSTINIL [Suspect]
     Active Substance: TREPROSTINIL
     Indication: Pulmonary arterial hypertension
     Dosage: UNK
     Route: 048
     Dates: start: 20180129
  3. ORENITRAM [Suspect]
     Active Substance: TREPROSTINIL
     Indication: Pulmonary arterial hypertension
     Dosage: 1 MG, 3X/DAY
     Route: 048
     Dates: start: 20220224
  4. ORENITRAM [Suspect]
     Active Substance: TREPROSTINIL
     Indication: Pulmonary arterial hypertension
     Dosage: 1.125 MG, 3X/DAY
     Route: 048
  5. NEURONTIN [Suspect]
     Active Substance: GABAPENTIN
     Dosage: UNK
     Route: 048
     Dates: start: 20220221
  6. LIPITOR [Suspect]
     Active Substance: ATORVASTATIN CALCIUM
     Dosage: UNK
     Dates: start: 20220221
  7. METOPROLOL [Suspect]
     Active Substance: METOPROLOL
     Dosage: UNK
     Dates: start: 20220221
  8. ALBUTEROL [Concomitant]
     Active Substance: ALBUTEROL
  9. AMIODARONE HYDROCHLORIDE [Concomitant]
     Active Substance: AMIODARONE HYDROCHLORIDE
  10. AVASTIN [Concomitant]
     Active Substance: BEVACIZUMAB
  11. CALCIUM [Concomitant]
     Active Substance: CALCIUM
  12. PLAVIX [Concomitant]
     Active Substance: CLOPIDOGREL BISULFATE
  13. DIGOXIN [Concomitant]
     Active Substance: DIGOXIN
  14. CYMBALTA [Concomitant]
     Active Substance: DULOXETINE HYDROCHLORIDE
  15. AROMASIN [Concomitant]
     Active Substance: EXEMESTANE
  16. IRON [Concomitant]
     Active Substance: IRON
  17. FEMARA [Concomitant]
     Active Substance: LETROZOLE
  18. SYNTHROID [Concomitant]
     Active Substance: LEVOTHYROXINE SODIUM
  19. OPSUMIT [Concomitant]
     Active Substance: MACITENTAN
  20. DULERA [Concomitant]
     Active Substance: FORMOTEROL FUMARATE DIHYDRATE\MOMETASONE FUROATE
  21. SINGULAIR [Concomitant]
     Active Substance: MONTELUKAST SODIUM
  22. ZOFRAN [Concomitant]
     Active Substance: ONDANSETRON HYDROCHLORIDE
  23. PROTONIX [Concomitant]
     Active Substance: PANTOPRAZOLE SODIUM
  24. K-DUR [Concomitant]
     Active Substance: POTASSIUM CHLORIDE
  25. ALDACTONE [Concomitant]
     Active Substance: SPIRONOLACTONE
  26. SPIRIVA [Concomitant]
     Active Substance: TIOTROPIUM BROMIDE MONOHYDRATE
  27. DEMADEX [Concomitant]
     Active Substance: TORSEMIDE

REACTIONS (6)
  - Hypothermia [Recovering/Resolving]
  - Bradycardia [Recovering/Resolving]
  - Toxicity to various agents [Recovering/Resolving]
  - Toxic encephalopathy [Recovering/Resolving]
  - Accidental exposure to product [Recovered/Resolved]
  - Hypotension [Recovering/Resolving]

NARRATIVE: CASE EVENT DATE: 20220221
